FAERS Safety Report 23252746 (Version 1)
Quarter: 2023Q4

REPORT INFORMATION
  Report Type: Spontaneous
  Country: US (occurrence: US)
  Receive Date: 20231201
  Receipt Date: 20231201
  Transmission Date: 20240110
  Serious: No
  Sender: FDA-Public Use
  Company Number: US-BIOMARINAP-US-2023-154035

PATIENT

DRUGS (4)
  1. KUVAN [Suspect]
     Active Substance: SAPROPTERIN DIHYDROCHLORIDE
     Indication: Phenylketonuria
     Dosage: 200 MILLIGRAM, QD
     Route: 048
  2. TORACIN [Concomitant]
     Indication: Product used for unknown indication
  3. TORACIN [Concomitant]
     Indication: Product used for unknown indication
  4. PERIFLEX [Concomitant]
     Indication: Product used for unknown indication

REACTIONS (1)
  - Decreased appetite [Unknown]
